FAERS Safety Report 7008520-0 (Version None)
Quarter: 2010Q3

REPORT INFORMATION
  Report Type: 
  Country: None (occurrence: None)
  Receive Date: 20100922
  Receipt Date: 20100901
  Transmission Date: 20110219
  Serious: No
  Sender: FDA-Public Use
  Company Number: US-PFIZER INC-2010076239

PATIENT
  Age: 60 Year
  Sex: Female
  Weight: 65.6 kg

DRUGS (4)
  1. TIKOSYN [Suspect]
     Indication: ATRIAL FIBRILLATION
     Dosage: 500 UG, 2X/DAY
     Dates: start: 20100607
  2. TIKOSYN [Suspect]
     Indication: ATRIAL FLUTTER
  3. ATENOLOL [Concomitant]
     Indication: HEART RATE DECREASED
     Dosage: 12.5 MG, 2X/DAY
  4. WARFARIN [Concomitant]
     Dosage: 7 MG, UNK

REACTIONS (3)
  - ALANINE AMINOTRANSFERASE [None]
  - BLOOD POTASSIUM DECREASED [None]
  - ELECTROCARDIOGRAM QT PROLONGED [None]
